FAERS Safety Report 10204357 (Version 1)
Quarter: 2014Q2

REPORT INFORMATION
  Report Type: Spontaneous
  Country: US (occurrence: US)
  Receive Date: 20140529
  Receipt Date: 20140529
  Transmission Date: 20141212
  Serious: No
  Sender: FDA-Public Use
  Company Number: US-MYLANLABS-2013S1007682

PATIENT
  Sex: Female

DRUGS (2)
  1. AMITRIPTYLINE HYDROCHLORIDE TABLETS, USP [Suspect]
     Indication: DEPRESSION
     Route: 048
     Dates: start: 20130401, end: 20130404
  2. PREDNISONE [Concomitant]
     Dosage: ON PREDNISONE PREVIOUSLY AS WELL, AND DID NOT EXPERIENCE ANY EVENTS.

REACTIONS (2)
  - Diarrhoea [Recovered/Resolved]
  - Eructation [Recovered/Resolved]
